FAERS Safety Report 20095410 (Version 2)
Quarter: 2022Q1

REPORT INFORMATION
  Report Type: Report from Study
  Country: US (occurrence: US)
  Receive Date: 20211122
  Receipt Date: 20220119
  Transmission Date: 20220423
  Serious: Yes (Other)
  Sender: FDA-Public Use
  Company Number: US-SANOFI-00684550

PATIENT
  Age: 88 Year
  Sex: Female

DRUGS (3)
  1. DUPILUMAB [Suspect]
     Active Substance: DUPILUMAB
     Indication: Dermatitis atopic
     Dosage: 600 MG, 1X
  2. DUPILUMAB [Suspect]
     Active Substance: DUPILUMAB
     Dosage: 300 MG, QOW
     Route: 058
  3. AZELASTINE [Concomitant]
     Active Substance: AZELASTINE

REACTIONS (12)
  - Macular degeneration [Unknown]
  - Eye swelling [Recovering/Resolving]
  - Ocular hyperaemia [Unknown]
  - Periorbital swelling [Recovered/Resolved]
  - Eyelid margin crusting [Unknown]
  - Eyelid thickening [Unknown]
  - Eyelid exfoliation [Unknown]
  - Eye pain [Unknown]
  - Eye irritation [Unknown]
  - Rash [Unknown]
  - Eye pruritus [Unknown]
  - Product use issue [Unknown]
